FAERS Safety Report 7198340-9 (Version None)
Quarter: 2010Q4

REPORT INFORMATION
  Report Type: 
  Country: None (occurrence: None)
  Receive Date: 20101227
  Receipt Date: 20101216
  Transmission Date: 20110411
  Serious: Yes (Other)
  Sender: FDA-Public Use
  Company Number: FR-JNJFOC-20080303956

PATIENT
  Sex: Male
  Weight: 3.64 kg

DRUGS (5)
  1. REMICADE [Suspect]
     Indication: DRUG EXPOSURE DURING PREGNANCY
     Route: 064
  2. REMICADE [Suspect]
     Route: 064
  3. IMUREL [Concomitant]
     Route: 050
  4. XANAX [Concomitant]
     Route: 050
  5. DEROXAT [Concomitant]
     Route: 050

REACTIONS (2)
  - MATERNAL DRUGS AFFECTING FOETUS [None]
  - PREMATURE BABY [None]
